FAERS Safety Report 16303560 (Version 1)
Quarter: 2019Q2

REPORT INFORMATION
  Report Type: Spontaneous
  Country: US (occurrence: US)
  Receive Date: 20190513
  Receipt Date: 20190513
  Transmission Date: 20190711
  Serious: No
  Sender: FDA-Public Use
  Company Number: US-BAYER-2019-092738

PATIENT
  Age: 9 Year
  Sex: Male
  Weight: 48 kg

DRUGS (1)
  1. CLARITIN [Suspect]
     Active Substance: LORATADINE
     Dosage: 14 ML, UNK
     Route: 048

REACTIONS (1)
  - Extra dose administered [Unknown]
